FAERS Safety Report 18940249 (Version 2)
Quarter: 2021Q2

REPORT INFORMATION
  Report Type: Spontaneous
  Country: JP (occurrence: JP)
  Receive Date: 20210225
  Receipt Date: 20210415
  Transmission Date: 20210717
  Serious: Yes (Hospitalization, Other)
  Sender: FDA-Public Use
  Company Number: JP-009507513-2102JPN008491

PATIENT
  Age: 86 Year
  Sex: Male

DRUGS (1)
  1. STROMECTOL [Suspect]
     Active Substance: IVERMECTIN
     Indication: ACARODERMATITIS
     Dosage: 12 MILLIGRAM, ONCE
     Route: 048
     Dates: start: 201611, end: 201611

REACTIONS (4)
  - Henoch-Schonlein purpura [Recovering/Resolving]
  - Vasculitis gastrointestinal [Unknown]
  - Renal vasculitis [Unknown]
  - Drug-disease interaction [Unknown]

NARRATIVE: CASE EVENT DATE: 2016
